FAERS Safety Report 5125260-3 (Version None)
Quarter: 2006Q4

REPORT INFORMATION
  Report Type: 
  Country: None (occurrence: None)
  Receive Date: 20061010
  Receipt Date: 20061010
  Transmission Date: 20070319
  Serious: Yes (Other)
  Sender: FDA-Public Use
  Company Number: None

PATIENT
  Sex: Male
  Weight: 79.8331 kg

DRUGS (9)
  1. ENALAPRIL MALEATE [Suspect]
     Indication: HYPERTENSION
     Dosage: 10 MG QD PO
     Route: 048
     Dates: start: 20050315
  2. VALIUM [Concomitant]
  3. DURAGESIC-100 [Concomitant]
  4. PLAVIX [Concomitant]
  5. ALLEGRA [Concomitant]
  6. CALTRATE [Concomitant]
  7. PREVACID [Concomitant]
  8. NITROGLYCERIN [Concomitant]
  9. MEGACE [Concomitant]

REACTIONS (4)
  - HYPERHIDROSIS [None]
  - MUSCLE SPASMS [None]
  - PHARMACEUTICAL PRODUCT COMPLAINT [None]
  - RASH [None]
